FAERS Safety Report 19469426 (Version 3)
Quarter: 2022Q2

REPORT INFORMATION
  Report Type: Report from Study
  Country: AU (occurrence: AU)
  Receive Date: 20210628
  Receipt Date: 20220628
  Transmission Date: 20220720
  Serious: Yes (Other)
  Sender: FDA-Public Use
  Company Number: AU-GSKCCFAPAC-CASE-01240945_AE-46093

PATIENT

DRUGS (1)
  1. TAFENOQUINE [Suspect]
     Active Substance: TAFENOQUINE
     Indication: Prophylaxis
     Dosage: UNK

REACTIONS (3)
  - Bipolar disorder [Unknown]
  - Post-traumatic stress disorder [Unknown]
  - Mental disorder [Unknown]
